FAERS Safety Report 17289806 (Version 5)
Quarter: 2021Q1

REPORT INFORMATION
  Report Type: Spontaneous
  Country: FR (occurrence: FR)
  Receive Date: 20200120
  Receipt Date: 20210105
  Transmission Date: 20210419
  Serious: Yes (Death, Other)
  Sender: FDA-Public Use
  Company Number: FR-BAYER-2020-009748

PATIENT
  Age: 58 Year
  Sex: Female

DRUGS (1)
  1. VITRAKVI [Suspect]
     Active Substance: LAROTRECTINIB
     Indication: BRONCHIAL CARCINOMA
     Dosage: 100 MG, BID
     Route: 048
     Dates: start: 20191021, end: 20191107

REACTIONS (1)
  - Bronchial carcinoma [Fatal]
